FAERS Safety Report 14946008 (Version 1)
Quarter: 2018Q2

REPORT INFORMATION
  Report Type: Spontaneous
  Country: BR (occurrence: BR)
  Receive Date: 20180529
  Receipt Date: 20180529
  Transmission Date: 20180711
  Serious: Yes (Other)
  Sender: FDA-Public Use
  Company Number: BR-ROCHE-2130206

PATIENT
  Sex: Female

DRUGS (1)
  1. MABTHERA [Suspect]
     Active Substance: RITUXIMAB
     Indication: RHEUMATOID ARTHRITIS
     Dosage: 2 FLASKS, WAITS 14 DAYS AND, THEN, 2 MORE FLASKS
     Route: 065

REACTIONS (5)
  - Fallopian tube disorder [Unknown]
  - Ill-defined disorder [Unknown]
  - Tuberculosis [Unknown]
  - Product storage error [Unknown]
  - Uterine disorder [Unknown]
